FAERS Safety Report 25858993 (Version 2)
Quarter: 2025Q4

REPORT INFORMATION
  Report Type: Spontaneous
  Country: AU (occurrence: AU)
  Receive Date: 20250929
  Receipt Date: 20251004
  Transmission Date: 20260117
  Serious: Yes (Hospitalization, Other)
  Sender: MACLEODS
  Company Number: AU-MACLEODS PHARMA-MAC2025055438

PATIENT

DRUGS (7)
  1. TENOFOVIR [Suspect]
     Active Substance: TENOFOVIR
     Indication: HIV infection
     Route: 065
  2. LAMIVUDINE [Concomitant]
     Active Substance: LAMIVUDINE
     Indication: HIV infection
     Route: 065
  3. RALTEGRAVIR [Concomitant]
     Active Substance: RALTEGRAVIR
     Indication: HIV infection
     Route: 065
  4. OLMESARTAN [Concomitant]
     Active Substance: OLMESARTAN
     Indication: Product used for unknown indication
     Route: 065
  5. AMLODIPINE [Concomitant]
     Active Substance: AMLODIPINE BESYLATE
     Indication: Product used for unknown indication
     Route: 065
  6. METFORMIN [Concomitant]
     Active Substance: METFORMIN HYDROCHLORIDE
     Indication: Product used for unknown indication
     Route: 065
  7. DAPAGLIFLOZIN [Concomitant]
     Active Substance: DAPAGLIFLOZIN
     Indication: Product used for unknown indication
     Route: 065

REACTIONS (13)
  - Renal tubular acidosis [Recovered/Resolved]
  - Acute kidney injury [Recovering/Resolving]
  - Tubulointerstitial nephritis [Recovered/Resolved]
  - Respiratory acidosis [Unknown]
  - Metabolic acidosis [Recovered/Resolved]
  - Chronic kidney disease [Unknown]
  - Kidney fibrosis [Recovered/Resolved]
  - Renal tubular atrophy [Recovered/Resolved]
  - Fanconi syndrome [Recovered/Resolved]
  - Hyponatraemia [Recovered/Resolved]
  - Renal tubular injury [Recovered/Resolved]
  - Hypokalaemia [Recovering/Resolving]
  - Anaemia [Recovering/Resolving]
